FAERS Safety Report 5493936-4 (Version None)
Quarter: 2007Q4

REPORT INFORMATION
  Report Type: 
  Country: None (occurrence: None)
  Receive Date: 20071023
  Receipt Date: 20071011
  Transmission Date: 20080405
  Serious: Yes (Other)
  Sender: FDA-Public Use
  Company Number: ZA-PFIZER INC-2007086185

PATIENT
  Age: 59 Year
  Sex: Female

DRUGS (2)
  1. CADUET [Suspect]
     Indication: BLOOD CHOLESTEROL INCREASED
     Dosage: TEXT:5MG/10MG
     Route: 048
     Dates: start: 20070601, end: 20070901
  2. CADUET [Suspect]
     Indication: HYPERTENSION
     Dosage: TEXT:10MG/10MG

REACTIONS (2)
  - BLOOD PRESSURE SYSTOLIC INCREASED [None]
  - OEDEMA PERIPHERAL [None]
